FAERS Safety Report 22317233 (Version 1)
Quarter: 2023Q2

REPORT INFORMATION
  Report Type: Spontaneous
  Country: TH (occurrence: TH)
  Receive Date: 20230515
  Receipt Date: 20230515
  Transmission Date: 20230721
  Serious: Yes (Death, Hospitalization, Other)
  Sender: FDA-Public Use
  Company Number: TH-STRIDES ARCOLAB LIMITED-2023SP006938

PATIENT
  Age: 51 Year
  Sex: Male

DRUGS (4)
  1. PREDNISOLONE [Suspect]
     Active Substance: PREDNISOLONE
     Indication: Prophylaxis against graft versus host disease
     Dosage: 10 MILLIGRAM PER DAY
     Route: 065
  2. TACROLIMUS [Suspect]
     Active Substance: TACROLIMUS
     Indication: Prophylaxis against graft versus host disease
     Dosage: UNK
     Route: 065
  3. SIROLIMUS [Suspect]
     Active Substance: SIROLIMUS
     Indication: Prophylaxis against graft versus host disease
     Dosage: UNK, WITH A GOAL 24H SIROLIMUS LEVEL OF 4-6 NG/ML
     Route: 065
  4. COTRIMOXAZOLE [Concomitant]
     Active Substance: SULFAMETHOXAZOLE\TRIMETHOPRIM
     Indication: Prophylaxis
     Dosage: UNK
     Route: 065

REACTIONS (14)
  - Death [Fatal]
  - Cerebellar ischaemia [Unknown]
  - Cerebellar stroke [Unknown]
  - Nephropathy toxic [Unknown]
  - Acute kidney injury [Unknown]
  - Acute respiratory failure [Unknown]
  - Polyomavirus-associated nephropathy [Recovered/Resolved]
  - Septic shock [Unknown]
  - Enterococcal bacteraemia [Unknown]
  - Abdominal infection [Unknown]
  - Cytomegalovirus viraemia [Unknown]
  - Pneumonia viral [Unknown]
  - Graft versus host disease [Unknown]
  - Graft versus host disease in skin [Unknown]
